FAERS Safety Report 12812475 (Version 1)
Quarter: 2016Q4

REPORT INFORMATION
  Report Type: Spontaneous
  Country: FI (occurrence: FI)
  Receive Date: 20161005
  Receipt Date: 20161005
  Transmission Date: 20170207
  Serious: Yes (Hospitalization)
  Sender: FDA-Public Use
  Company Number: FI-FRESENIUS KABI-FK201607342

PATIENT
  Age: 44 Year
  Sex: Female

DRUGS (2)
  1. ZOVIRAX [Suspect]
     Active Substance: ACYCLOVIR
     Indication: ORAL HERPES
     Route: 061
  2. ACYCLOVIR SODIUM (MANUFACTURER UNKNOWN) [Suspect]
     Active Substance: ACYCLOVIR SODIUM
     Indication: ORAL HERPES
     Route: 048

REACTIONS (1)
  - Acute generalised exanthematous pustulosis [Unknown]
